FAERS Safety Report 5314954-2 (Version None)
Quarter: 2007Q2

REPORT INFORMATION
  Report Type: 
  Country: None (occurrence: None)
  Receive Date: 20070426
  Receipt Date: 20070413
  Transmission Date: 20071010
  Serious: Yes (Other)
  Sender: FDA-Public Use
  Company Number: US019876

PATIENT
  Age: 50 Year
  Sex: Female
  Weight: 99.7913 kg

DRUGS (8)
  1. PROVIGIL [Suspect]
     Indication: MULTIPLE SCLEROSIS
     Dosage: 100 MG QD ORAL
     Route: 048
     Dates: start: 20070123
  2. REBIF [Suspect]
     Indication: MULTIPLE SCLEROSIS
     Dosage: 44 UG 3 TIMES A WEEK SUBCUTANEOUS
     Route: 058
     Dates: start: 20060626
  3. ASPIRIN [Concomitant]
  4. PLAVIX [Concomitant]
  5. LOTREL [Concomitant]
  6. TOPROL-XL [Concomitant]
  7. OMEPRAZOLE [Concomitant]
  8. LYRICA [Concomitant]

REACTIONS (5)
  - APNOEA [None]
  - DEHYDRATION [None]
  - LOSS OF CONSCIOUSNESS [None]
  - MALAISE [None]
  - VISUAL DISTURBANCE [None]
